FAERS Safety Report 7448722-2 (Version None)
Quarter: 2011Q2

REPORT INFORMATION
  Report Type: 
  Country: None (occurrence: None)
  Receive Date: 20110429
  Receipt Date: 20100709
  Transmission Date: 20111010
  Serious: No
  Sender: FDA-Public Use
  Company Number: US-ASTRAZENECA-2010SE32166

PATIENT
  Sex: Male
  Weight: 87.5 kg

DRUGS (2)
  1. NEXIUM [Suspect]
     Indication: GASTROOESOPHAGEAL REFLUX DISEASE
     Route: 048
     Dates: start: 20010101, end: 20100101
  2. FLONASE [Concomitant]

REACTIONS (2)
  - CONDITION AGGRAVATED [None]
  - DRUG INEFFECTIVE [None]
